FAERS Safety Report 20678606 (Version 1)
Quarter: 2022Q2

REPORT INFORMATION
  Report Type: Spontaneous
  Country: PT (occurrence: PT)
  Receive Date: 20220406
  Receipt Date: 20220406
  Transmission Date: 20220720
  Serious: Yes (Other)
  Sender: FDA-Public Use
  Company Number: PT-GlaxoSmithKline-PT2022EME057830

PATIENT
  Age: 67 Year
  Sex: Male

DRUGS (7)
  1. KIVEXA [Suspect]
     Active Substance: ABACAVIR SULFATE\LAMIVUDINE
     Indication: HIV infection
     Dosage: UNK
     Dates: start: 201607
  2. DOLUTEGRAVIR [Suspect]
     Active Substance: DOLUTEGRAVIR
     Indication: HIV infection
     Dosage: UNK
     Dates: start: 201607
  3. JULUCA [Suspect]
     Active Substance: DOLUTEGRAVIR SODIUM\RILPIVIRINE HYDROCHLORIDE
     Indication: HIV infection
     Dosage: UNK
     Dates: start: 2020
  4. EMTRICITABINE\TENOFOVIR ALAFENAMIDE FUMARATE [Suspect]
     Active Substance: EMTRICITABINE\TENOFOVIR ALAFENAMIDE FUMARATE
     Indication: HIV infection
     Dosage: UNK
     Dates: start: 2019
  5. NIFEDIPINE [Concomitant]
     Active Substance: NIFEDIPINE
     Indication: Product used for unknown indication
     Dosage: UNK
  6. HYDROCHLOROTHIAZIDE\LOSARTAN [Concomitant]
     Active Substance: HYDROCHLOROTHIAZIDE\LOSARTAN
     Indication: Product used for unknown indication
     Dosage: UNK
  7. ASPIRIN [Concomitant]
     Active Substance: ASPIRIN
     Indication: Product used for unknown indication
     Dosage: UNK

REACTIONS (13)
  - Hypertensive nephropathy [Unknown]
  - Renal failure [Unknown]
  - Electrocardiogram QT interval abnormal [Unknown]
  - Latent tuberculosis [Unknown]
  - Hypercholesterolaemia [Unknown]
  - Hypertensive heart disease [Unknown]
  - Proteinuria [Unknown]
  - Arteriosclerosis [Unknown]
  - Insomnia [Unknown]
  - Body mass index increased [Unknown]
  - Blood pressure increased [Unknown]
  - Weight fluctuation [Unknown]
  - Lipids abnormal [Unknown]

NARRATIVE: CASE EVENT DATE: 20160701
